FAERS Safety Report 6456165-3 (Version None)
Quarter: 2009Q4

REPORT INFORMATION
  Report Type: 
  Country: None (occurrence: None)
  Receive Date: 20091125
  Receipt Date: 20091111
  Transmission Date: 20100525
  Serious: Yes (Death)
  Sender: FDA-Public Use
  Company Number: ES-ELI_LILLY_AND_COMPANY-ES200911003351

PATIENT
  Age: 87 Year
  Sex: Female

DRUGS (5)
  1. FORTEO [Suspect]
     Indication: OSTEOPOROSIS
     Dosage: 20 UG, UNK
     Route: 058
     Dates: end: 20091013
  2. PLAVIX [Concomitant]
  3. ANTIHYPERTENSIVES [Concomitant]
     Indication: HYPERTENSION
  4. TANAKENE [Concomitant]
  5. NATECAL [Concomitant]

REACTIONS (2)
  - BLOOD GLUCOSE DECREASED [None]
  - CEREBRAL HAEMORRHAGE [None]
